FAERS Safety Report 6785113-1 (Version None)
Quarter: 2010Q2

REPORT INFORMATION
  Report Type: 
  Country: None (occurrence: None)
  Receive Date: 20100622
  Receipt Date: 20100618
  Transmission Date: 20101027
  Serious: Yes (Hospitalization)
  Sender: FDA-Public Use
  Company Number: FR-MERCK-1006FRA00070

PATIENT
  Age: 54 Year
  Sex: Male

DRUGS (4)
  1. PRIMAXIN [Suspect]
     Indication: POSTOPERATIVE FEVER
     Route: 042
     Dates: start: 20100506, end: 20100515
  2. VANCOMYCIN [Suspect]
     Route: 042
     Dates: start: 20100507, end: 20100515
  3. ERYTHROMYCIN STEARATE [Suspect]
     Route: 042
     Dates: start: 20100510, end: 20100515
  4. CASPOFUNGIN ACETATE [Concomitant]
     Route: 042

REACTIONS (2)
  - RASH [None]
  - TOXIC SKIN ERUPTION [None]
